FAERS Safety Report 7432679 (Version 4)
Quarter: 2014Q4

REPORT INFORMATION
  Report Type: Spontaneous
  Country: JP (occurrence: JP)
  Receive Date: 20100624
  Receipt Date: 20141031
  Transmission Date: 20150529
  Serious: Yes (Hospitalization, Other)
  Sender: FDA-Public Use
  Company Number: JP-JNJFOC-20100510225

PATIENT
  Age: 68 Year
  Sex: Female
  Weight: 48 kg

DRUGS (11)
  1. LASIX [Concomitant]
     Active Substance: FUROSEMIDE
     Indication: CARDIAC FAILURE
     Route: 048
     Dates: start: 20070618
  2. MYSLEE [Concomitant]
     Active Substance: ZOLPIDEM TARTRATE
     Indication: INSOMNIA
     Route: 048
     Dates: start: 20070618
  3. ARTIST [Concomitant]
     Active Substance: CARVEDILOL
     Indication: CARDIAC FAILURE
     Route: 048
     Dates: start: 20031128
  4. ALDACTONE [Concomitant]
     Active Substance: SPIRONOLACTONE
     Indication: CARDIAC FAILURE
     Route: 048
     Dates: start: 20070618
  5. FLORID ORAL GEL 2% [Suspect]
     Active Substance: MICONAZOLE
     Indication: ORAL CANDIDIASIS
     Route: 049
     Dates: start: 201001
  6. LUPRAC [Concomitant]
     Active Substance: TORSEMIDE
     Indication: CARDIAC FAILURE
     Route: 048
     Dates: start: 20051125
  7. WARFARIN [Interacting]
     Active Substance: WARFARIN
     Indication: ATRIAL FIBRILLATION
     Route: 048
  8. WARFARIN [Interacting]
     Active Substance: WARFARIN
     Indication: ATRIAL FIBRILLATION
     Route: 048
     Dates: start: 20051109, end: 20100226
  9. FLORID ORAL GEL 2% [Suspect]
     Active Substance: MICONAZOLE
     Route: 049
  10. RENIVACE [Concomitant]
     Active Substance: ENALAPRIL
     Indication: CARDIAC FAILURE
     Route: 048
     Dates: start: 20030620
  11. VASOLAN [Concomitant]
     Active Substance: VERAPAMIL HYDROCHLORIDE
     Indication: ATRIAL FIBRILLATION
     Dosage: 120MG, 40MG
     Route: 048
     Dates: start: 20051109

REACTIONS (12)
  - Drug interaction [Recovered/Resolved]
  - Haemorrhage subcutaneous [None]
  - International normalised ratio increased [Recovered/Resolved]
  - Haemoptysis [Recovered/Resolved]
  - Oral candidiasis [None]
  - Anaemia [Unknown]
  - Malaise [Recovered/Resolved]
  - Potentiating drug interaction [None]
  - Haemoglobin decreased [Unknown]
  - Epistaxis [Recovered/Resolved]
  - Prothrombin time prolonged [None]
  - Haemorrhage [Recovered/Resolved]

NARRATIVE: CASE EVENT DATE: 20100226
